FAERS Safety Report 18876983 (Version 2)
Quarter: 2021Q1

REPORT INFORMATION
  Report Type: Report from Study
  Country: HN (occurrence: HN)
  Receive Date: 20210211
  Receipt Date: 20210226
  Transmission Date: 20210420
  Serious: Yes (Disabling, Other)
  Sender: FDA-Public Use
  Company Number: PHHY2019HN097688

PATIENT
  Sex: Female
  Weight: 71.66 kg

DRUGS (8)
  1. VYMADA [Suspect]
     Active Substance: SACUBITRIL\VALSARTAN
     Indication: CARDIAC DISORDER
     Dosage: 100 MG (1/2 IN THE MORNING, 1/2 IN THE NIGHT, SINCE 2 YEARS APPROXIMATELY)
     Route: 048
  2. FUROSEMIDE. [Concomitant]
     Active Substance: FUROSEMIDE
     Indication: PRODUCT USED FOR UNKNOWN INDICATION
     Dosage: 40 MG, QD (SINCE TWO YEARS AND A HALF APPROXIMATELY)
     Route: 048
  3. EXELON [Suspect]
     Active Substance: RIVASTIGMINE TARTRATE
     Indication: DEMENTIA ALZHEIMER^S TYPE
     Dosage: 9MG/5
     Route: 065
  4. EXELON [Suspect]
     Active Substance: RIVASTIGMINE TARTRATE
     Dosage: 1 DF (1 PATCH), QD (SINCE 3 YEARS APPROXIMATELY)
     Route: 065
  5. ESOMEPRAZOLE. [Concomitant]
     Active Substance: ESOMEPRAZOLE MAGNESIUM
     Indication: PRODUCT USED FOR UNKNOWN INDICATION
     Dosage: 40 MG, QD (SINCE 2 YEARS APPROXIMATELY, WHILE FASTING)
     Route: 048
  6. XARELTO [Concomitant]
     Active Substance: RIVAROXABAN
     Indication: PRODUCT USED FOR UNKNOWN INDICATION
     Dosage: 15 MG, QD (SINCE TWO AND HALF YEARS APPROXIMATELY)
     Route: 048
  7. ROBAXIN [Concomitant]
     Active Substance: METHOCARBAMOL
     Indication: PRODUCT USED FOR UNKNOWN INDICATION
     Dosage: 1 (NO UNITS PROVIDED (NOT REMEMBERED MG, ONCE IN NIGHT), QD (SINCE TWO AND HALF YEARS APPROXIMATELY)
     Route: 048
  8. ALDACTONE [Concomitant]
     Active Substance: SPIRONOLACTONE
     Indication: PRODUCT USED FOR UNKNOWN INDICATION
     Dosage: 25 MG, QD ((SINCE TWO YEARS AND A HALF APPROXIMATELY)
     Route: 048

REACTIONS (12)
  - Dementia Alzheimer^s type [Unknown]
  - Fluid imbalance [Unknown]
  - Chest pain [Unknown]
  - Gait disturbance [Unknown]
  - Cognitive disorder [Recovered/Resolved]
  - Anorectal disorder [Unknown]
  - Muscle rigidity [Unknown]
  - Wrong technique in product usage process [Unknown]
  - Lower limb fracture [Unknown]
  - Dyschezia [Unknown]
  - Product use in unapproved indication [Unknown]
  - Fall [Unknown]
